FAERS Safety Report 10523534 (Version 1)
Quarter: 2014Q4

REPORT INFORMATION
  Report Type: Spontaneous
  Country: RO (occurrence: RO)
  Receive Date: 20141017
  Receipt Date: 20141017
  Transmission Date: 20150528
  Serious: Yes (Other)
  Sender: FDA-Public Use
  Company Number: RO-BEH-2014045566

PATIENT
  Age: 14 Month
  Sex: Male

DRUGS (5)
  1. ANTIBIOTICS [Concomitant]
     Active Substance: UNSPECIFIED INGREDIENT
  2. OTHER ANALGESICS AND ANTIPYRETICS [Concomitant]
  3. RANITIDIN [Concomitant]
     Active Substance: RANITIDINE HYDROCHLORIDE
     Indication: KAWASAKI^S DISEASE
  4. ASPIRIN. [Concomitant]
     Active Substance: ASPIRIN
     Indication: KAWASAKI^S DISEASE
  5. INTRAVENOUS IMMUNOGLOBULIN [Suspect]
     Active Substance: HUMAN IMMUNOGLOBULIN G
     Indication: KAWASAKI^S DISEASE
     Dosage: HIGH DOSE ONCE/DAY FOR 5 DAYS
     Route: 042

REACTIONS (3)
  - Coronary artery aneurysm [Recovered/Resolved]
  - Weight decreased [Unknown]
  - Pericarditis [Recovered/Resolved]
